FAERS Safety Report 7554978-8 (Version None)
Quarter: 2011Q2

REPORT INFORMATION
  Report Type: 
  Country: None (occurrence: None)
  Receive Date: 20110615
  Receipt Date: 20110615
  Transmission Date: 20111010
  Serious: Yes (Hospitalization)
  Sender: FDA-Public Use
  Company Number: None

PATIENT
  Sex: Female
  Weight: 96.6162 kg

DRUGS (1)
  1. ORTHO TRI-CYCLEN LO [Suspect]

REACTIONS (1)
  - PULMONARY EMBOLISM [None]
